FAERS Safety Report 7311669-6 (Version None)
Quarter: 2011Q1

REPORT INFORMATION
  Report Type: 
  Country: None (occurrence: None)
  Receive Date: 20110224
  Receipt Date: 20110221
  Transmission Date: 20110831
  Serious: Yes (Other)
  Sender: FDA-Public Use
  Company Number: ZA-ABBOTT-11P-143-0704505-00

PATIENT
  Age: 70 Year
  Sex: Male

DRUGS (1)
  1. LUCRIN DEPOT INJECTION [Suspect]
     Indication: PROSTATE CANCER
     Dosage: 3 INJECTIONS IN 9 MONTHS
     Route: 050
     Dates: start: 20100501

REACTIONS (1)
  - MYELODYSPLASTIC SYNDROME [None]
